FAERS Safety Report 7276077-5 (Version None)
Quarter: 2011Q1

REPORT INFORMATION
  Report Type: 
  Country: None (occurrence: None)
  Receive Date: 20110204
  Receipt Date: 20110131
  Transmission Date: 20110831
  Serious: Yes (Hospitalization, Other)
  Sender: FDA-Public Use
  Company Number: ES-ABBOTT-11P-144-0699388-00

PATIENT
  Age: 45 Year
  Sex: Male

DRUGS (3)
  1. HUMIRA [Suspect]
     Indication: PSORIATIC ARTHROPATHY
  2. ISONIAZID [Suspect]
     Indication: TUBERCULOSIS
     Dates: start: 20101101, end: 20101101
  3. HUMIRA [Suspect]
     Indication: PSORIASIS
     Route: 058
     Dates: start: 20090101

REACTIONS (8)
  - DRUG HYPERSENSITIVITY [None]
  - TUBERCULOUS PLEURISY [None]
  - ASCITES [None]
  - PULMONARY TUBERCULOSIS [None]
  - PERITONEAL TUBERCULOSIS [None]
  - RASH [None]
  - PLEURAL EFFUSION [None]
  - SPLENIC LESION [None]
